FAERS Safety Report 23734991 (Version 1)
Quarter: 2024Q2

REPORT INFORMATION
  Report Type: Spontaneous
  Country: ES (occurrence: ES)
  Receive Date: 20240412
  Receipt Date: 20240412
  Transmission Date: 20240716
  Serious: Yes (Death, Life-Threatening, Hospitalization, Other)
  Sender: FDA-Public Use
  Company Number: ES-CELLTRION INC.-2020ES035331

PATIENT

DRUGS (2)
  1. INFLIXIMAB [Suspect]
     Active Substance: INFLIXIMAB
     Indication: Product used for unknown indication
     Dosage: UNK
  2. KEYTRUDA [Suspect]
     Active Substance: PEMBROLIZUMAB
     Indication: Non-small cell lung cancer
     Dosage: 200 MG EVERY 21 DAYS
     Dates: start: 20190926, end: 20191021

REACTIONS (4)
  - Malignant neoplasm progression [Fatal]
  - Immune-mediated lung disease [Fatal]
  - Agitation [Fatal]
  - Epistaxis [Fatal]

NARRATIVE: CASE EVENT DATE: 20191110
